FAERS Safety Report 21881036 (Version 2)
Quarter: 2023Q1

REPORT INFORMATION
  Report Type: Spontaneous
  Country: US (occurrence: US)
  Receive Date: 20230118
  Receipt Date: 20230221
  Transmission Date: 20230418
  Serious: Yes (Other)
  Sender: FDA-Public Use
  Company Number: US-JNJFOC-20230127037

PATIENT
  Age: 62 Year
  Sex: Female
  Weight: 45.400 kg

DRUGS (1)
  1. TREMFYA [Suspect]
     Active Substance: GUSELKUMAB
     Indication: Product used for unknown indication
     Route: 065

REACTIONS (4)
  - Ovarian cancer stage II [Unknown]
  - Skin wrinkling [Unknown]
  - Product quality issue [Unknown]
  - Product dose omission issue [Unknown]
